FAERS Safety Report 4490407-9 (Version None)
Quarter: 2004Q4

REPORT INFORMATION
  Report Type: 
  Country: None (occurrence: None)
  Receive Date: 20041028
  Receipt Date: 20041014
  Transmission Date: 20050328
  Serious: Yes (Hospitalization)
  Sender: FDA-Public Use
  Company Number: 2004239456JP

PATIENT
  Age: 66 Year
  Sex: Male

DRUGS (9)
  1. SOLU-MEDROL [Suspect]
     Dosage: 1 G, IV
     Route: 042
     Dates: start: 20041014, end: 20041014
  2. ZOVIRAX [Concomitant]
  3. ANHIBA [Concomitant]
  4. GLYCEOL [Concomitant]
  5. GASTER [Concomitant]
  6. VITAMEDIN INTRAVENOUS (THIAMINE DISULFIDE) [Concomitant]
  7. ARGATROBAN [Concomitant]
  8. THEO-DUR [Concomitant]
  9. POTACOL-R (MALTOSE) [Concomitant]

REACTIONS (2)
  - HEART RATE DECREASED [None]
  - SHOCK [None]
